FAERS Safety Report 23331738 (Version 1)
Quarter: 2023Q4

REPORT INFORMATION
  Report Type: Spontaneous
  Country: US (occurrence: None)
  Receive Date: 20231216
  Receipt Date: 20231216
  Transmission Date: 20240109
  Serious: Yes (Hospitalization, Other)
  Sender: FDA-Public Use
  Company Number: None

PATIENT
  Age: 52 Year
  Sex: Female
  Weight: 55.35 kg

DRUGS (4)
  1. KADCYLA [Suspect]
     Active Substance: ADO-TRASTUZUMAB EMTANSINE
     Indication: Triple positive breast cancer
     Dosage: OTHER FREQUENCY : 1X/3 WEEKS;?
     Route: 042
     Dates: start: 20230602
  2. DEVICE [Suspect]
     Active Substance: DEVICE
     Indication: Invasive ductal breast carcinoma
     Dosage: OTHER STRENGTH : GREYS OF RADIATION;?OTHER QUANTITY : 25 DAYS;?OTHER FREQUENCY : 5 DAYS PER WEEK;?OT
     Route: 050
     Dates: start: 20230628, end: 20230802
  3. MULTI-VITAMIN [Concomitant]
     Active Substance: .ALPHA.-TOCOPHEROL ACETATE, DL-\ASCORBIC ACID\CYANOCOBALAMIN\FLUORIDE ION\FOLIC ACID\NIACIN\PYRIDOXI
  4. BIOTIN [Concomitant]
     Active Substance: BIOTIN

REACTIONS (6)
  - Radiation injury [None]
  - Skin exfoliation [None]
  - Skin ulcer [None]
  - Telangiectasia [None]
  - Fibrosis [None]
  - Impaired healing [None]

NARRATIVE: CASE EVENT DATE: 20230901
